FAERS Safety Report 11712788 (Version 1)
Quarter: 2015Q4

REPORT INFORMATION
  Report Type: Spontaneous
  Country: US (occurrence: US)
  Receive Date: 20151104
  Receipt Date: 20151104
  Transmission Date: 20160304
  Serious: No
  Sender: FDA-Public Use
  Company Number: US-ELI_LILLY_AND_COMPANY-US201107006302

PATIENT
  Age: 68 Year
  Sex: Female

DRUGS (2)
  1. FORTEO [Suspect]
     Active Substance: TERIPARATIDE
     Indication: OSTEOPOROSIS
     Dosage: 20 UG, QD
     Dates: start: 20110706
  2. ALLERGY MEDICATION [Concomitant]
     Active Substance: DIPHENHYDRAMINE HYDROCHLORIDE

REACTIONS (11)
  - Dehydration [Unknown]
  - Feeling abnormal [Unknown]
  - Muscle spasms [Unknown]
  - Vitamin D decreased [Unknown]
  - Visual impairment [Unknown]
  - Injection site erythema [Unknown]
  - Pain [Unknown]
  - Thinking abnormal [Unknown]
  - Cystitis [Unknown]
  - Bone pain [Unknown]
  - Malaise [Unknown]

NARRATIVE: CASE EVENT DATE: 20110725
